FAERS Safety Report 7732056-2 (Version None)
Quarter: 2011Q3

REPORT INFORMATION
  Report Type: 
  Country: None (occurrence: None)
  Receive Date: 20110906
  Receipt Date: 20110728
  Transmission Date: 20111222
  Serious: No
  Sender: FDA-Public Use
  Company Number: US-AMGEN-USASP2011038647

PATIENT
  Age: 74 Year
  Sex: Female

DRUGS (7)
  1. MULTI-VITAMINS [Concomitant]
  2. PROLIA [Suspect]
     Indication: OSTEOPOROSIS POSTMENOPAUSAL
     Dosage: UNK UNK, Q6MO
     Dates: start: 20110706
  3. PROVERA [Concomitant]
     Dosage: UNK
     Dates: end: 20110701
  4. CALCIUM CARBONATE [Concomitant]
  5. VITAMIN D [Concomitant]
  6. TAMOXIFEN CITRATE [Concomitant]
  7. PREMARIN [Concomitant]
     Dosage: UNK
     Dates: end: 20110701

REACTIONS (1)
  - TOOTH REPAIR [None]
